FAERS Safety Report 6060604-X (Version None)
Quarter: 2009Q1

REPORT INFORMATION
  Report Type: 
  Country: None (occurrence: None)
  Receive Date: 20090130
  Receipt Date: 20090130
  Transmission Date: 20090719
  Serious: Yes (Death)
  Sender: FDA-Public Use
  Company Number: None

PATIENT

DRUGS (2)
  1. MYCAFUNGIN [Suspect]
     Indication: COLITIS
     Dosage: 200MG IV DAILY
     Route: 042
  2. MYCAFUNGIN [Suspect]
     Indication: SEPTIC SHOCK
     Dosage: 200MG IV DAILY
     Route: 042

REACTIONS (2)
  - GENERAL PHYSICAL HEALTH DETERIORATION [None]
  - MULTI-ORGAN FAILURE [None]
